FAERS Safety Report 19923247 (Version 9)
Quarter: 2023Q1

REPORT INFORMATION
  Report Type: Spontaneous
  Country: DE (occurrence: DE)
  Receive Date: 20211006
  Receipt Date: 20230207
  Transmission Date: 20230418
  Serious: Yes (Hospitalization, Disabling, Other)
  Sender: FDA-Public Use
  Company Number: DE-PFIZER INC-202101125133

PATIENT
  Age: 67 Year
  Sex: Male
  Weight: 110 kg

DRUGS (17)
  1. AMLODIPINE [Suspect]
     Active Substance: AMLODIPINE BESYLATE
     Indication: Product used for unknown indication
     Dosage: 1 DOSAGE FORM, QD
     Route: 065
  2. AMLODIPINE [Suspect]
     Active Substance: AMLODIPINE BESYLATE
     Dosage: 5 MG,1X/DAY
     Route: 048
  3. ALLOPURINOL [Concomitant]
     Active Substance: ALLOPURINOL
     Indication: Product used for unknown indication
     Dosage: 100 MILLIGRAM, QD (1X/DAY )
     Route: 048
  4. CANDESARTAN CILEXETIL [Concomitant]
     Active Substance: CANDESARTAN CILEXETIL
     Indication: Product used for unknown indication
     Dosage: UNK MG
     Route: 065
  5. CANDESARTAN CILEXETIL [Concomitant]
     Active Substance: CANDESARTAN CILEXETIL
     Dosage: 0.5-0-0.5
     Route: 065
  6. CANDESARTAN CILEXETIL [Concomitant]
     Active Substance: CANDESARTAN CILEXETIL
     Dosage: UNK, (0.5-0-0.5)
     Route: 065
  7. CANDESARTAN CILEXETIL [Concomitant]
     Active Substance: CANDESARTAN CILEXETIL
     Dosage: UNK, (0.5-0-0.5)
     Route: 065
  8. JANUMET [Concomitant]
     Active Substance: METFORMIN HYDROCHLORIDE\SITAGLIPTIN PHOSPHATE
     Indication: Product used for unknown indication
     Dosage: 2 DOSAGE FORM, BID
     Route: 065
  9. JANUMET [Concomitant]
     Active Substance: METFORMIN HYDROCHLORIDE\SITAGLIPTIN PHOSPHATE
     Dosage: 850 MG, QD(1 DF, 2X/DAY)
     Route: 065
  10. JANUMET [Concomitant]
     Active Substance: METFORMIN HYDROCHLORIDE\SITAGLIPTIN PHOSPHATE
     Dosage: 1 DF, 2X/DAY
     Route: 048
  11. BISOPROLOL [Concomitant]
     Active Substance: BISOPROLOL
     Indication: Product used for unknown indication
     Dosage: UNK0(.5-0.0.5) MG
     Route: 065
  12. BISOPROLOL [Concomitant]
     Active Substance: BISOPROLOL
     Dosage: 5 MILLIGRAM, QD (1X/DAY)
     Route: 065
  13. BISOPROLOL [Concomitant]
     Active Substance: BISOPROLOL
     Dosage: UNK, (0.5-0.0.5)
     Route: 065
  14. BISOPROLOL [Concomitant]
     Active Substance: BISOPROLOL
     Dosage: UNK, (0.5-0.0.5)
     Route: 065
  15. LISINOPRIL [Concomitant]
     Active Substance: LISINOPRIL
     Indication: Product used for unknown indication
     Dosage: 20 MILLIGRAM, QD
     Route: 048
  16. TORSEMIDE [Concomitant]
     Active Substance: TORSEMIDE
     Indication: Product used for unknown indication
     Dosage: UNK, (0.5-0.5-0)
     Route: 065
  17. LERCANIDIPINE [Concomitant]
     Active Substance: LERCANIDIPINE
     Indication: Product used for unknown indication
     Dosage: UNK, (1-0-0)
     Route: 065

REACTIONS (25)
  - Cardiac failure chronic [Not Recovered/Not Resolved]
  - Defaecation urgency [Unknown]
  - Dysuria [Unknown]
  - Leukocyturia [Unknown]
  - Polyp [Unknown]
  - Mitral valve incompetence [Unknown]
  - Weight increased [Recovered/Resolved]
  - Micturition urgency [Unknown]
  - Dyspnoea [Not Recovered/Not Resolved]
  - Oedema peripheral [Not Recovered/Not Resolved]
  - Angina pectoris [Unknown]
  - Corneal defect [Unknown]
  - Pain in extremity [Not Recovered/Not Resolved]
  - Diverticulum [Unknown]
  - Chills [Recovered/Resolved]
  - Cold sweat [Recovered/Resolved]
  - Hypersomnia [Not Recovered/Not Resolved]
  - Limb discomfort [Not Recovered/Not Resolved]
  - Fatigue [Not Recovered/Not Resolved]
  - Ventricular extrasystoles [Unknown]
  - Arthralgia [Unknown]
  - Eye inflammation [Unknown]
  - Chronic disease [Unknown]
  - Quality of life decreased [Unknown]
  - Paraesthesia [Unknown]

NARRATIVE: CASE EVENT DATE: 20210101
